FAERS Safety Report 15180072 (Version 2)
Quarter: 2019Q2

REPORT INFORMATION
  Report Type: Spontaneous
  Country: US (occurrence: US)
  Receive Date: 20180723
  Receipt Date: 20190426
  Transmission Date: 20190711
  Serious: No
  Sender: FDA-Public Use
  Company Number: US-PFIZER INC-2018294450

PATIENT
  Age: 7 Year
  Sex: Male

DRUGS (2)
  1. GENOTROPIN MQ [Suspect]
     Active Substance: SOMATROPIN
     Dosage: 1.4 MG, DAILY
  2. GENOTROPIN MQ [Suspect]
     Active Substance: SOMATROPIN
     Dosage: 1.2 MG, DAILY
     Dates: start: 201106

REACTIONS (9)
  - Blood glucose increased [Unknown]
  - Enuresis [Recovered/Resolved]
  - Blood urea nitrogen/creatinine ratio increased [Unknown]
  - Blood prolactin increased [Unknown]
  - Dehydroepiandrosterone increased [Unknown]
  - Precocious puberty [Unknown]
  - Weight gain poor [Recovering/Resolving]
  - Blood 25-hydroxycholecalciferol increased [Unknown]
  - Blood follicle stimulating hormone decreased [Unknown]
